FAERS Safety Report 16170880 (Version 2)
Quarter: 2019Q2

REPORT INFORMATION
  Report Type: Report from Study
  Country: None (occurrence: BR)
  Receive Date: 20190408
  Receipt Date: 20190410
  Transmission Date: 20190711
  Serious: Yes (Other)
  Sender: FDA-Public Use
  Company Number: BR-ABBVIE-19K-020-2734446-00

PATIENT
  Sex: Female
  Weight: 60 kg

DRUGS (4)
  1. DORENE [Concomitant]
     Indication: FIBROMYALGIA
  2. HUMIRA [Suspect]
     Active Substance: ADALIMUMAB
     Route: 058
     Dates: start: 2017, end: 20190306
  3. HUMIRA [Suspect]
     Active Substance: ADALIMUMAB
     Indication: CROHN^S DISEASE
     Dosage: LOADING DOSE - WEEK 0
     Route: 058
     Dates: start: 20170815, end: 20170815
  4. HUMIRA [Suspect]
     Active Substance: ADALIMUMAB
     Dosage: LOADING DOSE - WEEK 2
     Route: 058
     Dates: start: 20170829, end: 20170829

REACTIONS (12)
  - Cough [Recovering/Resolving]
  - Influenza [Recovering/Resolving]
  - Dengue fever [Recovering/Resolving]
  - Pain [Recovering/Resolving]
  - Abortion [Unknown]
  - Insomnia [Recovering/Resolving]
  - Joint swelling [Recovering/Resolving]
  - Pain [Recovering/Resolving]
  - Headache [Recovering/Resolving]
  - Exposure during pregnancy [Unknown]
  - Spondylitis [Unknown]
  - Fibromyalgia [Recovering/Resolving]

NARRATIVE: CASE EVENT DATE: 201710
